FAERS Safety Report 5311488-6 (Version None)
Quarter: 2007Q2

REPORT INFORMATION
  Report Type: 
  Country: None (occurrence: None)
  Receive Date: 20070426
  Receipt Date: 20070426
  Transmission Date: 20071010
  Serious: Yes (Other)
  Sender: FDA-Public Use
  Company Number: None

PATIENT
  Age: 66 Year
  Sex: Male
  Weight: 72.5755 kg

DRUGS (14)
  1. CITALOPRAM 40MG TABLET [Suspect]
     Indication: ANXIETY
     Dosage: 20 MG, PO DAILY
     Route: 048
     Dates: start: 20061109, end: 20061112
  2. CITALOPRAM 40MG TABLET [Suspect]
     Indication: DEPRESSION
     Dosage: 20 MG, PO DAILY
     Route: 048
     Dates: start: 20061109, end: 20061112
  3. GABAPENTIN [Suspect]
     Indication: BACK PAIN
     Dosage: 600 MG PO TID
     Route: 048
     Dates: start: 20060605
  4. ATENOLOL AND CHLORTHALIDONE [Concomitant]
  5. CLOPIDOGREL [Concomitant]
  6. CLOTRIMAZOLE [Concomitant]
  7. CODEINE PHOSPHATE AND ACETAMINOPHEN [Concomitant]
  8. GABAPENTIN [Concomitant]
  9. OMEGA-3 FATTY ACIDS [Concomitant]
  10. SIMVASTATIN [Concomitant]
  11. NON-VA PIOGLITAZONE [Concomitant]
  12. HYDROXYZINE PAMOATE [Concomitant]
  13. HYDRALAZINE HCL [Concomitant]
  14. IMIPRAMINE HCL [Concomitant]

REACTIONS (2)
  - CONFUSIONAL STATE [None]
  - HALLUCINATION [None]
